FAERS Safety Report 10196825 (Version 1)
Quarter: 2014Q2

REPORT INFORMATION
  Report Type: Spontaneous
  Country: DE (occurrence: DE)
  Receive Date: 20140527
  Receipt Date: 20140527
  Transmission Date: 20141212
  Serious: Yes (Death, Other)
  Sender: FDA-Public Use
  Company Number: DE-PFIZER INC-2014141580

PATIENT
  Sex: Male

DRUGS (3)
  1. SERTRALINE HCL [Suspect]
     Indication: BIPOLAR DISORDER
     Dosage: 50 MG, DAILY
     Route: 064
     Dates: start: 20130304, end: 20130810
  2. SEROQUEL PROLONG [Suspect]
     Indication: BIPOLAR DISORDER
     Dosage: 150 MG, DAILY
     Route: 064
     Dates: start: 20121213, end: 2013
  3. SEROQUEL PROLONG [Suspect]
     Dosage: 50 MG, DAILY
     Route: 064
     Dates: start: 2013, end: 20130810

REACTIONS (4)
  - Maternal exposure during pregnancy [Fatal]
  - Vena cava thrombosis [Fatal]
  - Renal vein thrombosis [Fatal]
  - Low birth weight baby [Unknown]
